FAERS Safety Report 4365437-8 (Version None)
Quarter: 2004Q2

REPORT INFORMATION
  Report Type: 
  Country: None (occurrence: None)
  Receive Date: 20040525
  Receipt Date: 20040525
  Transmission Date: 20050107
  Serious: Yes (Hospitalization)
  Sender: FDA-Public Use
  Company Number: None

PATIENT
  Age: 82 Year
  Sex: Female
  Weight: 48.3 kg

DRUGS (12)
  1. BEXTRA [Suspect]
     Indication: BACK PAIN
     Dosage: 10 MG PO DAILY
     Route: 048
  2. CALCIUM [Concomitant]
  3. MULTI-VITAMIN [Concomitant]
  4. SPIRONOLACTONE [Concomitant]
  5. FUROSEMIDE [Concomitant]
  6. FOLIC ACID [Concomitant]
  7. SOD BICARB [Concomitant]
  8. PANCREALIPASE [Concomitant]
  9. DIOVAN [Concomitant]
  10. NORVASC [Concomitant]
  11. EVISTA [Concomitant]
  12. IRON [Concomitant]

REACTIONS (3)
  - ANAEMIA [None]
  - HYPERKALAEMIA [None]
  - RENAL FAILURE ACUTE [None]
